FAERS Safety Report 9208144 (Version 2)
Quarter: 2013Q2

REPORT INFORMATION
  Report Type: Report from Study
  Country: US (occurrence: US)
  Receive Date: 20130403
  Receipt Date: 20130415
  Transmission Date: 20140414
  Serious: Yes (Hospitalization)
  Sender: FDA-Public Use
  Company Number: PHHO2013US004635

PATIENT
  Age: 23 Year
  Sex: Male

DRUGS (3)
  1. CERTICAN [Suspect]
     Indication: RENAL TRANSPLANT
     Dosage: 0.75 MG, BID
     Route: 048
     Dates: start: 20111014
  2. PREDNISONE [Suspect]
     Indication: RENAL TRANSPLANT
  3. PROGRAF [Suspect]
     Indication: RENAL TRANSPLANT
     Route: 048

REACTIONS (1)
  - Kidney transplant rejection [Not Recovered/Not Resolved]
